FAERS Safety Report 10084052 (Version 3)
Quarter: 2014Q2

REPORT INFORMATION
  Report Type: Report from Study
  Country: IE (occurrence: IE)
  Receive Date: 20140417
  Receipt Date: 20140620
  Transmission Date: 20141212
  Serious: No
  Sender: FDA-Public Use
  Company Number: PHHY2014IE043466

PATIENT
  Age: 65 Year
  Sex: Male

DRUGS (6)
  1. ULTIBRO BREEZHALER [Suspect]
     Indication: CHRONIC OBSTRUCTIVE PULMONARY DISEASE
     Route: 055
     Dates: start: 20140325, end: 20140328
  2. PROZAC [Concomitant]
     Indication: DEPRESSION
     Dosage: 20 MG, QD
     Route: 048
  3. PRAVASTATIN [Concomitant]
     Dosage: 40 MG, QD
     Route: 048
  4. NU-SEALS ASPIRIN [Concomitant]
     Dosage: 75 MG,
     Route: 048
  5. TRITACE [Concomitant]
     Dosage: 1.25 MG,
     Route: 048
  6. STILNOCT [Concomitant]
     Route: 048

REACTIONS (10)
  - Peripheral swelling [Recovering/Resolving]
  - Feeling hot [Recovering/Resolving]
  - Poor peripheral circulation [Recovering/Resolving]
  - Gait disturbance [Recovering/Resolving]
  - Dyspnoea [Recovering/Resolving]
  - Decreased appetite [Recovering/Resolving]
  - Limb discomfort [Recovering/Resolving]
  - Chest pain [Recovering/Resolving]
  - Neck pain [Recovering/Resolving]
  - Rhinorrhoea [Recovering/Resolving]
